FAERS Safety Report 7908621-6 (Version None)
Quarter: 2011Q4

REPORT INFORMATION
  Report Type: 
  Country: None (occurrence: None)
  Receive Date: 20111111
  Receipt Date: 20111108
  Transmission Date: 20120403
  Serious: Yes (Hospitalization, Other)
  Sender: FDA-Public Use
  Company Number: US-PFIZER INC-2011142272

PATIENT
  Sex: Female

DRUGS (3)
  1. CHANTIX [Suspect]
     Indication: SMOKING CESSATION THERAPY
     Dosage: 1 MG, UNK
     Dates: start: 20100101, end: 20100401
  2. VALIUM [Concomitant]
     Indication: INSOMNIA
  3. VALIUM [Concomitant]
     Indication: ANXIETY
     Dosage: UNK
     Dates: start: 20080101, end: 20110101

REACTIONS (6)
  - SUICIDAL IDEATION [None]
  - ANXIETY [None]
  - INSOMNIA [None]
  - SUICIDE ATTEMPT [None]
  - DEPRESSION [None]
  - BIPOLAR II DISORDER [None]
